FAERS Safety Report 22630792 (Version 4)
Quarter: 2025Q1

REPORT INFORMATION
  Report Type: Spontaneous
  Country: US (occurrence: US)
  Receive Date: 20230622
  Receipt Date: 20250226
  Transmission Date: 20250409
  Serious: No
  Sender: PFIZER
  Company Number: US-PFIZER INC-PV202300105974

PATIENT
  Age: 68 Year
  Sex: Female
  Weight: 113.37 kg

DRUGS (2)
  1. IBRANCE [Suspect]
     Active Substance: PALBOCICLIB
     Indication: Breast cancer
  2. IBRANCE [Suspect]
     Active Substance: PALBOCICLIB
     Dosage: 75 MG, DAILY (DAYS 1-21 FOLLOWED BY 7 DAYS OFF)
     Route: 048

REACTIONS (2)
  - Full blood count decreased [Unknown]
  - Product dispensing error [Unknown]
